FAERS Safety Report 7784868-7 (Version None)
Quarter: 2011Q3

REPORT INFORMATION
  Report Type: 
  Country: None (occurrence: None)
  Receive Date: 20110928
  Receipt Date: 20110928
  Transmission Date: 20111222
  Serious: Yes (Other)
  Sender: FDA-Public Use
  Company Number: PT-ABBOTT-11P-130-0852554-00

PATIENT
  Sex: Male

DRUGS (3)
  1. NORVIR [Suspect]
     Indication: HIV INFECTION
     Route: 048
     Dates: start: 20070119
  2. ZIDOVUDINE [Suspect]
     Indication: HIV INFECTION
     Route: 048
     Dates: start: 20070119, end: 20110819
  3. ZIAGEN [Suspect]
     Indication: HIV INFECTION
     Route: 048
     Dates: start: 20070119

REACTIONS (5)
  - NEPHROLITHIASIS [None]
  - LIPODYSTROPHY ACQUIRED [None]
  - RENAL IMPAIRMENT [None]
  - DYSLIPIDAEMIA [None]
  - BLOOD CREATININE INCREASED [None]
